FAERS Safety Report 6413300-0 (Version None)
Quarter: 2009Q4

REPORT INFORMATION
  Report Type: 
  Country: None (occurrence: None)
  Receive Date: 20091026
  Receipt Date: 20091013
  Transmission Date: 20100525
  Serious: Yes (Death)
  Sender: FDA-Public Use
  Company Number: TW-ROCHE-662288

PATIENT
  Age: 46 Year
  Sex: Male

DRUGS (1)
  1. TAMIFLU [Suspect]
     Route: 065
     Dates: start: 20090827

REACTIONS (3)
  - ENCEPHALITIS [None]
  - MULTI-ORGAN FAILURE [None]
  - PNEUMONIA [None]
